FAERS Safety Report 18742423 (Version 1)
Quarter: 2021Q1

REPORT INFORMATION
  Report Type: Spontaneous
  Country: US (occurrence: US)
  Receive Date: 20210114
  Receipt Date: 20210114
  Transmission Date: 20210419
  Serious: Yes (Hospitalization)
  Sender: FDA-Public Use
  Company Number: US-ALLERGAN-2102282US

PATIENT
  Sex: Female

DRUGS (3)
  1. OXYBUTYNIN UNK [Suspect]
     Active Substance: OXYBUTYNIN
     Indication: PRODUCT USED FOR UNKNOWN INDICATION
  2. PAROXETINE. [Concomitant]
     Active Substance: PAROXETINE
     Indication: PRODUCT USED FOR UNKNOWN INDICATION
  3. GABAPENTIN. [Suspect]
     Active Substance: GABAPENTIN
     Indication: PRODUCT USED FOR UNKNOWN INDICATION

REACTIONS (4)
  - Mental status changes [Recovering/Resolving]
  - Depressed level of consciousness [Recovering/Resolving]
  - Somnolence [Recovering/Resolving]
  - Confusional state [Recovering/Resolving]
